FAERS Safety Report 4637375-4 (Version None)
Quarter: 2005Q2

REPORT INFORMATION
  Report Type: 
  Country: None (occurrence: None)
  Receive Date: 20050325
  Receipt Date: 20041206
  Transmission Date: 20051028
  Serious: No
  Sender: FDA-Public Use
  Company Number: USA041285321

PATIENT
  Age: 73 Year
  Sex: Female
  Weight: 60 kg

DRUGS (12)
  1. FORTEO [Suspect]
     Indication: THORACIC VERTEBRAL FRACTURE
     Dosage: 20 UG/1 DAY
     Dates: start: 20031001
  2. ALLOPURINOL [Concomitant]
  3. PREDNISONE [Concomitant]
  4. COUMADIN [Concomitant]
  5. TYLENOL W/ CODEINE [Concomitant]
  6. ROBAXIN [Concomitant]
  7. ULTRAM [Concomitant]
  8. VITAMIN PACKET [Concomitant]
  9. ZETIA [Concomitant]
  10. NEXIUM [Concomitant]
  11. CRANBERRY [Concomitant]
  12. B-LIFT TABLETS [Concomitant]

REACTIONS (8)
  - ASTHENIA [None]
  - BLOOD POTASSIUM INCREASED [None]
  - FALL [None]
  - GAIT DISTURBANCE [None]
  - INSOMNIA [None]
  - MUSCLE SPASMS [None]
  - PAIN IN EXTREMITY [None]
  - TREMOR [None]
